FAERS Safety Report 20867392 (Version 5)
Quarter: 2022Q3

REPORT INFORMATION
  Report Type: Spontaneous
  Country: US (occurrence: US)
  Receive Date: 20220524
  Receipt Date: 20220710
  Transmission Date: 20221026
  Serious: No
  Sender: FDA-Public Use
  Company Number: US-ELI_LILLY_AND_COMPANY-US202205009667

PATIENT
  Age: 59 Year
  Sex: Male

DRUGS (13)
  1. BASAGLAR [Suspect]
     Active Substance: INSULIN GLARGINE
     Indication: Type 2 diabetes mellitus
     Dosage: 15 U, EACH EVENING
     Route: 058
     Dates: start: 20220518
  2. BASAGLAR [Suspect]
     Active Substance: INSULIN GLARGINE
     Indication: Type 2 diabetes mellitus
     Dosage: 15 U, EACH EVENING
     Route: 058
     Dates: start: 20220518
  3. BASAGLAR [Suspect]
     Active Substance: INSULIN GLARGINE
     Indication: Type 2 diabetes mellitus
     Dosage: 15 U, EACH EVENING
     Route: 058
     Dates: start: 20220518
  4. BASAGLAR [Suspect]
     Active Substance: INSULIN GLARGINE
     Dosage: 15 U, EACH EVENING
     Route: 058
  5. BASAGLAR [Suspect]
     Active Substance: INSULIN GLARGINE
     Dosage: 15 U, EACH EVENING
     Route: 058
  6. BASAGLAR [Suspect]
     Active Substance: INSULIN GLARGINE
     Dosage: 15 U, EACH EVENING
     Route: 058
  7. BASAGLAR [Suspect]
     Active Substance: INSULIN GLARGINE
     Dosage: 15 U, EACH EVENING
     Route: 058
  8. BASAGLAR [Suspect]
     Active Substance: INSULIN GLARGINE
     Dosage: 15 U, EACH EVENING
     Route: 058
  9. BASAGLAR [Suspect]
     Active Substance: INSULIN GLARGINE
     Dosage: 15 U, EACH EVENING
     Route: 058
  10. BASAGLAR [Suspect]
     Active Substance: INSULIN GLARGINE
     Dosage: UNK UNK, UNKNOWN
     Route: 065
  11. BASAGLAR [Suspect]
     Active Substance: INSULIN GLARGINE
     Dosage: UNK UNK, UNKNOWN
     Route: 065
  12. BASAGLAR [Suspect]
     Active Substance: INSULIN GLARGINE
     Dosage: UNK UNK, UNKNOWN
     Route: 065
  13. METFORMIN HYDROCHLORIDE [Concomitant]
     Active Substance: METFORMIN HYDROCHLORIDE
     Indication: Type 2 diabetes mellitus
     Dosage: 500 MG, DAILY

REACTIONS (3)
  - Blood glucose increased [Recovering/Resolving]
  - Diabetes mellitus inadequate control [Unknown]
  - Incorrect dose administered [Unknown]

NARRATIVE: CASE EVENT DATE: 20220601
